FAERS Safety Report 21303294 (Version 1)
Quarter: 2022Q3

REPORT INFORMATION
  Report Type: Spontaneous
  Country: US (occurrence: US)
  Receive Date: 20220907
  Receipt Date: 20220907
  Transmission Date: 20221027
  Serious: No
  Sender: FDA-Public Use
  Company Number: US-SUNOVION-2022SUN002601AA

PATIENT
  Age: 78 Year
  Sex: Male

DRUGS (1)
  1. LATUDA [Suspect]
     Active Substance: LURASIDONE HYDROCHLORIDE
     Dosage: 20 MG (HALF 40MG TABL)
     Route: 048

REACTIONS (2)
  - Tremor [Unknown]
  - Wrong technique in product usage process [Unknown]
